FAERS Safety Report 8106611 (Version 3)
Quarter: 2012Q4

REPORT INFORMATION
  Report Type: 
  Country: US (occurrence: US)
  Receive Date: 20110825
  Receipt Date: 20121130
  Transmission Date: 20130627
  Serious: Yes (Other)
  Sender: FDA-Public Use
  Company Number: US-GLAXOSMITHKLINE-A0933741A

PATIENT
  Sex: Male

DRUGS (1)
  1. AVANDIA [Suspect]
     Indication: DIABETES MELLITUS
     Dosage: 8MG Twice per day
     Route: 048
     Dates: start: 20010817, end: 20070613

REACTIONS (2)
  - Myocardial infarction [Unknown]
  - Cardiac failure congestive [Unknown]
